FAERS Safety Report 19671101 (Version 5)
Quarter: 2021Q4

REPORT INFORMATION
  Report Type: Report from Study
  Country: US (occurrence: US)
  Receive Date: 20210806
  Receipt Date: 20211113
  Transmission Date: 20220303
  Serious: Yes (Hospitalization, Disabling, Other)
  Sender: FDA-Public Use
  Company Number: NVSC2021US175127

PATIENT
  Sex: Male

DRUGS (1)
  1. ENTRESTO [Suspect]
     Active Substance: SACUBITRIL\VALSARTAN
     Indication: Cardiac failure
     Dosage: 1 DF, BID (24/26 MG)
     Route: 048
     Dates: start: 20210728

REACTIONS (10)
  - Oxygen saturation decreased [Not Recovered/Not Resolved]
  - Dry mouth [Unknown]
  - Memory impairment [Unknown]
  - Dyspnoea [Unknown]
  - Malaise [Unknown]
  - Hypertension [Recovered/Resolved]
  - Weight decreased [Unknown]
  - Fall [Unknown]
  - Productive cough [Unknown]
  - Hypotension [Unknown]
